FAERS Safety Report 5911117-4 (Version None)
Quarter: 2008Q4

REPORT INFORMATION
  Report Type: 
  Country: None (occurrence: None)
  Receive Date: 20081007
  Receipt Date: 20080117
  Transmission Date: 20090506
  Serious: No
  Sender: FDA-Public Use
  Company Number: US-BRISTOL-MYERS SQUIBB COMPANY-14049548

PATIENT
  Age: 73 Year
  Sex: Female

DRUGS (2)
  1. AVALIDE [Suspect]
     Indication: BLOOD PRESSURE
  2. AVAPRO [Suspect]
     Indication: BLOOD PRESSURE

REACTIONS (1)
  - BLOOD PRESSURE INADEQUATELY CONTROLLED [None]
